FAERS Safety Report 8618779-1 (Version None)
Quarter: 2012Q3

REPORT INFORMATION
  Report Type: 
  Country: None (occurrence: None)
  Receive Date: 20120824
  Receipt Date: 20120814
  Transmission Date: 20120928
  Serious: Yes (Hospitalization, Other)
  Sender: FDA-Public Use
  Company Number: US-JNJFOC-20120807523

PATIENT
  Sex: Male

DRUGS (1)
  1. RISPERDAL [Suspect]
     Indication: SCHIZOPHRENIA
     Route: 048
     Dates: start: 19960401

REACTIONS (5)
  - TYPE 2 DIABETES MELLITUS [None]
  - ACTIVITIES OF DAILY LIVING IMPAIRED [None]
  - HYPERTENSION [None]
  - THERAPEUTIC RESPONSE DECREASED [None]
  - HYPOTHYROIDISM [None]
